FAERS Safety Report 7168810-8 (Version None)
Quarter: 2010Q4

REPORT INFORMATION
  Report Type: 
  Country: None (occurrence: None)
  Receive Date: 20101216
  Receipt Date: 20100414
  Transmission Date: 20110411
  Serious: No
  Sender: FDA-Public Use
  Company Number: US-AMGEN-KDL385709

PATIENT

DRUGS (1)
  1. ENBREL [Suspect]
     Indication: PSORIASIS
     Dosage: 50 MG, 2 TIMES/WK
     Route: 058
     Dates: start: 20091222

REACTIONS (5)
  - LARYNGITIS [None]
  - OROPHARYNGEAL PAIN [None]
  - PHARYNGITIS [None]
  - PRODUCTIVE COUGH [None]
  - SPUTUM DISCOLOURED [None]
